FAERS Safety Report 7649992-8 (Version None)
Quarter: 2011Q3

REPORT INFORMATION
  Report Type: 
  Country: None (occurrence: None)
  Receive Date: 20110802
  Receipt Date: 20110729
  Transmission Date: 20111222
  Serious: Yes (Hospitalization, Other)
  Sender: FDA-Public Use
  Company Number: FI-BRISTOL-MYERS SQUIBB COMPANY-15934714

PATIENT
  Age: 19 Year
  Sex: Female

DRUGS (1)
  1. ORENCIA [Suspect]
     Indication: JUVENILE ARTHRITIS
     Dosage: TOTAL 3 INFUSIONS.LAST INFUSION:21-JUN-2011
     Dates: start: 20110101

REACTIONS (1)
  - BLISTER [None]
